FAERS Safety Report 4552923-0 (Version None)
Quarter: 2005Q1

REPORT INFORMATION
  Report Type: 
  Country: None (occurrence: None)
  Receive Date: 20050114
  Receipt Date: 20050106
  Transmission Date: 20050727
  Serious: Yes (Hospitalization, Disabling, Other)
  Sender: FDA-Public Use
  Company Number: US-GLAXOSMITHKLINE-A0539636A

PATIENT
  Age: 51 Year
  Sex: Male
  Weight: 111.4 kg

DRUGS (2)
  1. NICORETTE [Suspect]
     Indication: SMOKING CESSATION THERAPY
     Route: 002
     Dates: start: 19890101, end: 19930101
  2. NICORETTE (MINT) [Concomitant]
     Indication: SMOKING CESSATION THERAPY
     Route: 002
     Dates: start: 19980101

REACTIONS (6)
  - BACK PAIN [None]
  - CHEST PAIN [None]
  - INTERVERTEBRAL DISC PROTRUSION [None]
  - LARGE CELL CARCINOMA OF THE RESPIRATORY TRACT STAGE UNSPECIFIED [None]
  - LIFE SUPPORT [None]
  - LUNG DISORDER [None]
